FAERS Safety Report 8957459 (Version 1)
Quarter: 2012Q4

REPORT INFORMATION
  Report Type: 
  Country: US (occurrence: US)
  Receive Date: 20121210
  Receipt Date: 20121210
  Transmission Date: 20130627
  Serious: Yes (Hospitalization)
  Sender: FDA-Public Use
  Company Number: US-BAYER-2012-129161

PATIENT
  Age: 83 Year
  Sex: Male
  Weight: 70 kg

DRUGS (2)
  1. BAYER GENUINE ASPIRIN ORIGINAL STRENGTH [Suspect]
     Dosage: 2 UNK, UNK
     Route: 048
     Dates: start: 201206, end: 201206
  2. ECOTRIN [Concomitant]

REACTIONS (2)
  - Off label use [None]
  - Myocardial infarction [None]
